FAERS Safety Report 22365648 (Version 1)
Quarter: 2023Q2

REPORT INFORMATION
  Report Type: Spontaneous
  Country: US (occurrence: US)
  Receive Date: 20230525
  Receipt Date: 20230525
  Transmission Date: 20230722
  Serious: Yes (Other)
  Sender: FDA-Public Use
  Company Number: US-SA-2023SA158217

PATIENT
  Age: 56 Year
  Sex: Female

DRUGS (1)
  1. SEVELAMER [Suspect]
     Active Substance: SEVELAMER
     Indication: End stage renal disease
     Dosage: UNK

REACTIONS (8)
  - Shock haemorrhagic [Recovered/Resolved]
  - Hypotension [Recovered/Resolved]
  - Haemodynamic instability [Recovered/Resolved]
  - Colitis ischaemic [Recovered/Resolved]
  - Gastric mucosa erythema [Recovered/Resolved]
  - Inflammation [Recovered/Resolved]
  - Haematochezia [Recovered/Resolved]
  - Crystal deposit intestine [Unknown]
